FAERS Safety Report 4861415-0 (Version None)
Quarter: 2005Q4

REPORT INFORMATION
  Report Type: 
  Country: None (occurrence: None)
  Receive Date: 20051220
  Receipt Date: 20051209
  Transmission Date: 20060501
  Serious: Yes (Other)
  Sender: FDA-Public Use
  Company Number: PHMT2005CA00791

PATIENT
  Sex: Male

DRUGS (2)
  1. METOPROLOL [Concomitant]
  2. DIOVAN [Suspect]
     Dates: end: 20040907

REACTIONS (1)
  - BRADYCARDIA [None]
